FAERS Safety Report 7765629-1 (Version None)
Quarter: 2011Q4

REPORT INFORMATION
  Report Type: 
  Country: None (occurrence: None)
  Receive Date: 20110921
  Receipt Date: 20110919
  Transmission Date: 20120403
  Serious: Yes (Other)
  Sender: FDA-Public Use
  Company Number: PHHY2011NL83246

PATIENT
  Sex: Female

DRUGS (10)
  1. ASPIRIN [Concomitant]
     Dosage: 80 MG, QOD
  2. CALCIUM CARBONATE [Concomitant]
     Dosage: 1G/800 IU 1X1
  3. CLOPIDOGREL [Concomitant]
     Dosage: 75 MG, QD
  4. FUROSEMIDE [Concomitant]
     Dosage: 20 MG, QD
  5. METOPROLOL SUCCINATE [Concomitant]
     Dosage: 25 MG, QD
  6. OMEPRAZOLE [Concomitant]
     Dosage: 40 MG, QD
  7. ZOMETA [Suspect]
     Indication: MULTIPLE MYELOMA
     Dosage: 4 MG/5 ML IV AT 360ML/H 1X PER 42 DAYS
     Dates: start: 20110223
  8. ZOMETA [Suspect]
     Dosage: 4 MG/5 ML IV AT 360ML/H 1X PER 42 DAYS
     Dates: start: 20110808
  9. ZOMETA [Suspect]
     Dosage: 4 MG/5 ML IV AT 360ML/H 1X PER 42 DAYS
     Dates: start: 20110919
  10. TRAUMEEL S [Suspect]

REACTIONS (5)
  - SPINAL COMPRESSION FRACTURE [None]
  - MULTIPLE MYELOMA [None]
  - BACK PAIN [None]
  - PAIN IN EXTREMITY [None]
  - MUSCULOSKELETAL PAIN [None]
